FAERS Safety Report 5947615-7 (Version None)
Quarter: 2008Q4

REPORT INFORMATION
  Report Type: 
  Country: None (occurrence: None)
  Receive Date: 20081107
  Receipt Date: 20081029
  Transmission Date: 20090506
  Serious: Yes (Hospitalization)
  Sender: FDA-Public Use
  Company Number: 2008SP022021

PATIENT
  Age: 49 Year
  Sex: Male
  Weight: 87.9978 kg

DRUGS (17)
  1. PEG-INTRON [Suspect]
     Indication: HEPATITIS C
     Dosage: 150 MCG;SC
     Route: 058
     Dates: start: 20080519, end: 20081022
  2. RIBAVIRIN [Suspect]
     Indication: HEPATITIS C
     Dosage: 1200 MG;PO
     Route: 048
     Dates: start: 20080519, end: 20081022
  3. BACTRIM [Concomitant]
  4. CEPHALEXIN [Concomitant]
  5. MOTRIN [Concomitant]
  6. CHLORASEPTIC THROAT SPRAY [Concomitant]
  7. SPORTSCREAM [Concomitant]
  8. ADVIL [Concomitant]
  9. ISONIAZID [Concomitant]
  10. VITAMIN B6 [Concomitant]
  11. LEXAPRO [Concomitant]
  12. PHENERGAN HCL [Concomitant]
  13. DRAMAMINE [Concomitant]
  14. PEPTO-BISMOL [Concomitant]
  15. NEUPOGEN [Concomitant]
  16. INVESTIGATIONAL DRUG [Suspect]
     Indication: HEPATITIS C
     Dosage: 435 MG; IV
     Route: 042
     Dates: start: 20080519, end: 20081022
  17. DRAMAMINE [Concomitant]

REACTIONS (15)
  - ABDOMINAL DISTENSION [None]
  - ABDOMINAL PAIN [None]
  - ALANINE AMINOTRANSFERASE INCREASED [None]
  - AMMONIA INCREASED [None]
  - ASPARTATE AMINOTRANSFERASE INCREASED [None]
  - BACK PAIN [None]
  - BLOOD ALKALINE PHOSPHATASE INCREASED [None]
  - BLOOD LACTATE DEHYDROGENASE INCREASED [None]
  - FEELING ABNORMAL [None]
  - HEPATOMEGALY [None]
  - LOSS OF CONSCIOUSNESS [None]
  - NAUSEA [None]
  - SELF-MEDICATION [None]
  - SPLENOMEGALY [None]
  - VOMITING [None]
